FAERS Safety Report 5957141-7 (Version None)
Quarter: 2008Q4

REPORT INFORMATION
  Report Type: 
  Country: None (occurrence: None)
  Receive Date: 20081117
  Receipt Date: 20081117
  Transmission Date: 20090506
  Serious: Yes (Other)
  Sender: FDA-Public Use
  Company Number: None

PATIENT
  Sex: Female
  Weight: 115.6672 kg

DRUGS (2)
  1. HEPARIN SODIUM [Suspect]
     Indication: PREGNANCY
     Dosage: 1 ML 2X DAY SQ
     Route: 058
     Dates: start: 20081020, end: 20081113
  2. HEPARIN SODIUM [Suspect]
     Indication: THROMBOPHLEBITIS
     Dosage: 1 ML 2X DAY SQ
     Route: 058
     Dates: start: 20081020, end: 20081113

REACTIONS (3)
  - HYPERSENSITIVITY [None]
  - INJECTION SITE URTICARIA [None]
  - PYREXIA [None]
